FAERS Safety Report 11326129 (Version 1)
Quarter: 2015Q3

REPORT INFORMATION
  Report Type: Spontaneous
  Country: US (occurrence: US)
  Receive Date: 20150731
  Receipt Date: 20150731
  Transmission Date: 20151125
  Serious: Yes (Other)
  Sender: FDA-Public Use
  Company Number: US-BEH-2015052609

PATIENT
  Sex: Male
  Weight: 29 kg

DRUGS (17)
  1. DIPHENHYDRAMINE 25 MG [Concomitant]
  2. NALTREXONE HCL 50 MG [Concomitant]
  3. DEXTROSE 5% [Concomitant]
     Active Substance: DEXTROSE
  4. IBUPROFEN 200 MG [Concomitant]
     Active Substance: IBUPROFEN
  5. EPIPEN AUTOINJECTOR [Concomitant]
  6. RA MELATONIN 3 MG [Concomitant]
  7. PYRIDOXAL-5-PHOSPHATE POWDER [Concomitant]
  8. PRIVIGEN [Suspect]
     Active Substance: HUMAN IMMUNOGLOBULIN G
     Route: 042
  9. L-M-X 4% [Concomitant]
  10. SODIUM CHLORIDE 0.9% [Concomitant]
     Active Substance: SODIUM CHLORIDE
  11. EPIPEN JR. AUTOINJECTOR [Concomitant]
  12. CONCERTA 27 MG ER [Concomitant]
  13. ROCEPHIN 1 G VIAL [Concomitant]
  14. VALIUM 2 MG [Concomitant]
  15. ZYRTEC 10 MG [Concomitant]
  16. PRIVIGEN [Suspect]
     Active Substance: HUMAN IMMUNOGLOBULIN G
     Indication: HYPOGAMMAGLOBULINAEMIA
     Route: 042
  17. ACETAMINOPHEN 325 MG [Concomitant]

REACTIONS (4)
  - Pyrexia [Unknown]
  - Vomiting [Unknown]
  - Gastric infection [Unknown]
  - Headache [Unknown]
